FAERS Safety Report 5032077-7 (Version None)
Quarter: 2006Q2

REPORT INFORMATION
  Report Type: 
  Country: None (occurrence: None)
  Receive Date: 20060619
  Receipt Date: 20060602
  Transmission Date: 20061013
  Serious: Yes (Hospitalization)
  Sender: FDA-Public Use
  Company Number: US200604001439

PATIENT
  Age: 67 Year
  Sex: Female

DRUGS (3)
  1. CYMBALATA (DULOXETINE HYDROCHLORIDE) CAPSULE [Suspect]
     Indication: NEUROPATHY PERIPHERAL
     Dosage: SEE IMAGE
     Route: 048
     Dates: start: 20060101, end: 20060101
  2. CYMBALATA (DULOXETINE HYDROCHLORIDE) CAPSULE [Suspect]
     Indication: NEUROPATHY PERIPHERAL
     Dosage: SEE IMAGE
     Route: 048
  3. REQUIP (ROPINROLE HYDROCHLORIDE) [Concomitant]

REACTIONS (16)
  - ANHEDONIA [None]
  - ASTHENIA [None]
  - DELIRIUM [None]
  - DELUSION [None]
  - DEPRESSED MOOD [None]
  - DISTURBANCE IN ATTENTION [None]
  - FEELING GUILTY [None]
  - FEELINGS OF WORTHLESSNESS [None]
  - IRRITABILITY [None]
  - LIBIDO INCREASED [None]
  - MANIA [None]
  - MULTI-ORGAN DISORDER [None]
  - PRESSURE OF SPEECH [None]
  - PSYCHOMOTOR HYPERACTIVITY [None]
  - PSYCHOMOTOR RETARDATION [None]
  - THINKING ABNORMAL [None]
